FAERS Safety Report 17736679 (Version 3)
Quarter: 2021Q1

REPORT INFORMATION
  Report Type: Spontaneous
  Country: US (occurrence: US)
  Receive Date: 20200501
  Receipt Date: 20210204
  Transmission Date: 20210419
  Serious: Yes (Hospitalization, Other)
  Sender: FDA-Public Use
  Company Number: US-GILEAD-2020-0463103

PATIENT
  Age: 61 Year
  Sex: Male
  Weight: 72.56 kg

DRUGS (106)
  1. EMTRIVA [Concomitant]
     Active Substance: EMTRICITABINE
  2. SUSTIVA [Concomitant]
     Active Substance: EFAVIRENZ
  3. BENAZEPRIL [Concomitant]
     Active Substance: BENAZEPRIL HYDROCHLORIDE
  4. CHLORTHALIDONE. [Concomitant]
     Active Substance: CHLORTHALIDONE
  5. FOLIC ACID. [Concomitant]
     Active Substance: FOLIC ACID
  6. MEGESTROL ACETATE. [Concomitant]
     Active Substance: MEGESTROL ACETATE
  7. TRAMADOL. [Concomitant]
     Active Substance: TRAMADOL
  8. GENVOYA [Concomitant]
     Active Substance: COBICISTAT\ELVITEGRAVIR\EMTRICITABINE\TENOFOVIR ALAFENAMIDE FUMARATE
  9. NORVIR [Concomitant]
     Active Substance: RITONAVIR
  10. AMOXCLAV [AMOXICILLIN;CLAVULANIC ACID] [Concomitant]
     Active Substance: AMOXICILLIN\CLAVULANIC ACID
  11. BUSPIRONE [Concomitant]
     Active Substance: BUSPIRONE HYDROCHLORIDE
  12. CIPROFLOXACIN. [Concomitant]
     Active Substance: CIPROFLOXACIN
  13. COUMADIN [Concomitant]
     Active Substance: WARFARIN SODIUM
  14. COZAAR [Concomitant]
     Active Substance: LOSARTAN POTASSIUM
  15. GABAPENTIN. [Concomitant]
     Active Substance: GABAPENTIN
  16. GAVILYTE G [Concomitant]
     Active Substance: POLYETHYLENE GLYCOL 3350\POTASSIUM CHLORIDE\SODIUM BICARBONATE\SODIUM CHLORIDE\SODIUM SULFATE
  17. HYDROCODONE/ACETAMINOPHEN [Concomitant]
     Active Substance: ACETAMINOPHEN\HYDROCODONE
  18. MELATONIN [Concomitant]
     Active Substance: MELATONIN
  19. MILK THISTLE [SILYBUM MARIANUM] [Concomitant]
     Active Substance: DIETARY SUPPLEMENT\HERBALS\MILK THISTLE
  20. PROAIR HFA [Concomitant]
     Active Substance: ALBUTEROL SULFATE
  21. WARFARIN [Concomitant]
     Active Substance: WARFARIN
  22. ZOLPIDEM [Concomitant]
     Active Substance: ZOLPIDEM TARTRATE
  23. ATRIPLA [Suspect]
     Active Substance: EFAVIRENZ\EMTRICITABINE\TENOFOVIR DISOPROXIL FUMARATE
     Indication: HIV INFECTION
     Dosage: UNK
     Route: 048
     Dates: start: 2004, end: 2016
  24. VIDEX [Concomitant]
     Active Substance: DIDANOSINE
  25. ABACAVIR. [Concomitant]
     Active Substance: ABACAVIR
  26. AMLODIPINE [Concomitant]
     Active Substance: AMLODIPINE BESYLATE
  27. BENZONATATE. [Concomitant]
     Active Substance: BENZONATATE
  28. CEPHALEXINE [Concomitant]
     Active Substance: CEPHALEXIN
  29. CHLORDIAZEPOXIDE. [Concomitant]
     Active Substance: CHLORDIAZEPOXIDE
  30. DOCUSATE [Concomitant]
     Active Substance: DOCUSATE
  31. FUROSEMIDE. [Concomitant]
     Active Substance: FUROSEMIDE
  32. LAMIVUDINE. [Concomitant]
     Active Substance: LAMIVUDINE
  33. LEVAQUIN [Concomitant]
     Active Substance: LEVOFLOXACIN
  34. METOPROLOL. [Concomitant]
     Active Substance: METOPROLOL
  35. NORVASC [Concomitant]
     Active Substance: AMLODIPINE BESYLATE
  36. SERTRALINE [Concomitant]
     Active Substance: SERTRALINE HYDROCHLORIDE
  37. SUCRALFATE. [Concomitant]
     Active Substance: SUCRALFATE
  38. ZYPREXA [Concomitant]
     Active Substance: OLANZAPINE
  39. TRUVADA [Suspect]
     Active Substance: EMTRICITABINE\TENOFOVIR DISOPROXIL FUMARATE
     Indication: HIV INFECTION
     Dosage: UNK
     Route: 048
     Dates: start: 2004
  40. ERYTHROPOIETIN [Concomitant]
     Active Substance: ERYTHROPOIETIN
  41. AMMONIUM LACTATE. [Concomitant]
     Active Substance: AMMONIUM LACTATE
  42. ATORVASTATIN [Concomitant]
     Active Substance: ATORVASTATIN
  43. CETIRIZINE [Concomitant]
     Active Substance: CETIRIZINE HYDROCHLORIDE
  44. DICLOFENAC POTASSIUM. [Concomitant]
     Active Substance: DICLOFENAC POTASSIUM
  45. HYDRALAZINE [Concomitant]
     Active Substance: HYDRALAZINE HYDROCHLORIDE
  46. HYDROCODONE [Concomitant]
     Active Substance: HYDROCODONE
  47. NAMENDA [Concomitant]
     Active Substance: MEMANTINE HYDROCHLORIDE
  48. NEOMYCIN. [Concomitant]
     Active Substance: NEOMYCIN
  49. NEPHRO [Concomitant]
  50. Q DRYL [Concomitant]
  51. OXYCODONE [Concomitant]
     Active Substance: OXYCODONE
  52. OXYCODONE/APAP [Concomitant]
     Active Substance: ACETAMINOPHEN\OXYCODONE HYDROCHLORIDE
  53. PANTOPRAZOLE [Concomitant]
     Active Substance: PANTOPRAZOLE
  54. PROMETHAZINE [Concomitant]
     Active Substance: PROMETHAZINE HYDROCHLORIDE
  55. TRIAMCINOLONE [Concomitant]
     Active Substance: TRIAMCINOLONE
  56. CLONIDINE. [Concomitant]
     Active Substance: CLONIDINE
  57. AZITHROMYCIN ANHYDROUS. [Concomitant]
     Active Substance: AZITHROMYCIN ANHYDROUS
  58. DICYCLOMINE [Concomitant]
     Active Substance: DICYCLOMINE HYDROCHLORIDE
  59. DIDANOSINE. [Concomitant]
     Active Substance: DIDANOSINE
  60. LAMIVUDINE. [Concomitant]
     Active Substance: LAMIVUDINE
  61. LEVOFLOXACIN. [Concomitant]
     Active Substance: LEVOFLOXACIN
  62. NIFEDICAL XL [Concomitant]
     Active Substance: NIFEDIPINE
  63. TRIFLURIDINE. [Concomitant]
     Active Substance: TRIFLURIDINE
  64. ZIAGEN [Concomitant]
     Active Substance: ABACAVIR SULFATE
  65. ALPRAZOLAM. [Concomitant]
     Active Substance: ALPRAZOLAM
  66. CARISOPRODOL. [Concomitant]
     Active Substance: CARISOPRODOL
  67. CELEXA [CELECOXIB] [Concomitant]
     Active Substance: CELECOXIB
  68. CLINDAMYCIN. [Concomitant]
     Active Substance: CLINDAMYCIN
  69. HYZAAR [Concomitant]
     Active Substance: HYDROCHLOROTHIAZIDE\LOSARTAN POTASSIUM
  70. NEVANAC [Concomitant]
     Active Substance: NEPAFENAC
  71. RENA?VITE [Concomitant]
     Active Substance: ASCORBIC ACID\BIOTIN\CALCIUM PANTOTHENATE\CYANOCOBALAMIN\FOLIC ACID\NIACINAMIDE\PYRIDOXINE HYDROCHLORIDE\RIBOFLAVIN\THIAMINE MONONITRATE
  72. SMZ?TMP [Concomitant]
     Active Substance: SULFAMETHOXAZOLE\TRIMETHOPRIM
  73. VENTOLIN HFA [Concomitant]
     Active Substance: ALBUTEROL SULFATE
  74. ATRIPLA [Suspect]
     Active Substance: EFAVIRENZ\EMTRICITABINE\TENOFOVIR DISOPROXIL FUMARATE
     Dosage: UNK
     Route: 048
     Dates: start: 2006, end: 2018
  75. SPIRONOLACTONE. [Concomitant]
     Active Substance: SPIRONOLACTONE
  76. CARVEDILOL. [Concomitant]
     Active Substance: CARVEDILOL
  77. COMBIVIR [Concomitant]
     Active Substance: LAMIVUDINE\ZIDOVUDINE
  78. EPIVIR [Concomitant]
     Active Substance: LAMIVUDINE
  79. TRIUMEQ [Concomitant]
     Active Substance: ABACAVIR SULFATE\DOLUTEGRAVIR SODIUM\LAMIVUDINE
  80. AMOXICILLIN. [Concomitant]
     Active Substance: AMOXICILLIN
  81. COLCHICINE. [Concomitant]
     Active Substance: COLCHICINE
  82. FLUCONAZOLE. [Concomitant]
     Active Substance: FLUCONAZOLE
  83. KETOCONAZOLE. [Concomitant]
     Active Substance: KETOCONAZOLE
  84. LABETALOL [Concomitant]
     Active Substance: LABETALOL\LABETALOL HYDROCHLORIDE
  85. LEXAPRO [Concomitant]
     Active Substance: ESCITALOPRAM OXALATE
  86. LIDOCAINE. [Concomitant]
     Active Substance: LIDOCAINE
  87. LISINOPRIL. [Concomitant]
     Active Substance: LISINOPRIL
  88. NYSTATIN. [Concomitant]
     Active Substance: NYSTATIN
  89. OMEPRAZOLE. [Concomitant]
     Active Substance: OMEPRAZOLE
  90. PREDNISONE. [Concomitant]
     Active Substance: PREDNISONE
  91. SMZ?TMP DS [Concomitant]
     Active Substance: SULFAMETHOXAZOLE\TRIMETHOPRIM
  92. TRAZODONE [Concomitant]
     Active Substance: TRAZODONE HYDROCHLORIDE
  93. TIVICAY [Concomitant]
     Active Substance: DOLUTEGRAVIR SODIUM
  94. ADVIL [Concomitant]
     Active Substance: IBUPROFEN
  95. AMITRIPTYLINE [Concomitant]
     Active Substance: AMITRIPTYLINE
  96. CLARITHROMYCIN. [Concomitant]
     Active Substance: CLARITHROMYCIN
  97. CLONAZEPAM. [Concomitant]
     Active Substance: CLONAZEPAM
  98. LEVETIRACETAM. [Concomitant]
     Active Substance: LEVETIRACETAM
  99. METRONIDAZOLE. [Concomitant]
     Active Substance: METRONIDAZOLE
  100. PRAVASTATIN. [Concomitant]
     Active Substance: PRAVASTATIN
  101. PROPOXYPHENE N/APAP [Concomitant]
     Active Substance: ACETAMINOPHEN\PROPOXYPHENE NAPSYLATE
  102. RENVELA [Concomitant]
     Active Substance: SEVELAMER CARBONATE
  103. SEVELAMER [Concomitant]
     Active Substance: SEVELAMER
  104. SPS [Concomitant]
     Active Substance: SODIUM POLYSTYRENE SULFONATE
  105. SULFAMETHOXAZOLE [Concomitant]
     Active Substance: SULFAMETHOXAZOLE
  106. SUPREP BOWEL PREP [Concomitant]
     Active Substance: MAGNESIUM SULFATE\POTASSIUM SULFATE\SODIUM SULFATE

REACTIONS (8)
  - Acute kidney injury [Recovered/Resolved]
  - Hyperkalaemia [Not Recovered/Not Resolved]
  - Renal failure [Unknown]
  - Hypertension [Not Recovered/Not Resolved]
  - End stage renal disease [Not Recovered/Not Resolved]
  - Chronic kidney disease [Unknown]
  - Hepatitis C [Not Recovered/Not Resolved]
  - Anaemia [Not Recovered/Not Resolved]

NARRATIVE: CASE EVENT DATE: 2017
